FAERS Safety Report 5136341-2 (Version None)
Quarter: 2006Q4

REPORT INFORMATION
  Report Type: 
  Country: None (occurrence: None)
  Receive Date: 20061027
  Receipt Date: 20061013
  Transmission Date: 20070319
  Serious: Yes (Hospitalization)
  Sender: FDA-Public Use
  Company Number: GB-MERCK-0610GBR00109

PATIENT
  Age: 69 Year
  Sex: Male

DRUGS (3)
  1. ZOCOR [Suspect]
     Indication: HYPERCHOLESTEROLAEMIA
     Route: 048
  2. ALLOPURINOL SODIUM [Concomitant]
     Route: 065
  3. LISINOPRIL [Concomitant]
     Route: 065

REACTIONS (4)
  - GLYCOGEN STORAGE DISEASE TYPE V [None]
  - LOSS OF CONSCIOUSNESS [None]
  - MUSCULAR WEAKNESS [None]
  - MYOSITIS [None]
